FAERS Safety Report 4483438-6 (Version None)
Quarter: 2004Q4

REPORT INFORMATION
  Report Type: 
  Country: None (occurrence: None)
  Receive Date: 20041020
  Receipt Date: 20041008
  Transmission Date: 20050328
  Serious: Yes (Death, Hospitalization, Other)
  Sender: FDA-Public Use
  Company Number: USA-2004-0014093

PATIENT
  Age: 47 Year
  Sex: Male
  Weight: 95.2 kg

DRUGS (16)
  1. OXYCONTIN [Suspect]
     Indication: PAIN
     Dosage: SEE IMAGE
     Route: 048
  2. HYDROCODONE BITARTRATE [Suspect]
  3. DIHYDROCODEINE/CAFFEINE/ACETAAMINOPHEN (SIMILAR TO AND 88-584) (PARACE [Suspect]
  4. METHADONE (METHADONE) [Suspect]
  5. VALIUM [Suspect]
  6. NICOTINE [Suspect]
  7. DOXEPIN (DOXEPIN) [Suspect]
  8. ELAVIL [Concomitant]
  9. TOPAMAX (TOPIRAMATE0 [Concomitant]
  10. SONATA [Concomitant]
  11. LORTAB [Concomitant]
  12. LOCET [Concomitant]
  13. AMERGE [Concomitant]
  14. PROPRANOLOL [Concomitant]
  15. DEPAKOTE (VALPORATE SEMISODIUM) [Concomitant]
  16. IMITREX [Concomitant]

REACTIONS (33)
  - ACCIDENTAL OVERDOSE [None]
  - ANOREXIA [None]
  - ANXIETY [None]
  - ASTHENIA [None]
  - COMPLEX PARTIAL SEIZURES [None]
  - CONDITION AGGRAVATED [None]
  - CONFUSIONAL STATE [None]
  - CONVULSION [None]
  - DEAFNESS [None]
  - DRUG ABUSER [None]
  - DRUG DEPENDENCE [None]
  - DYSARTHRIA [None]
  - EAR PAIN [None]
  - EMOTIONAL DISTRESS [None]
  - EYE PAIN [None]
  - HEADACHE [None]
  - INSOMNIA [None]
  - LOSS OF CONSCIOUSNESS [None]
  - MALAISE [None]
  - MENTAL STATUS CHANGES [None]
  - MULTIPLE DRUG OVERDOSE [None]
  - NAUSEA [None]
  - NECK PAIN [None]
  - PAIN [None]
  - PAIN IN EXTREMITY [None]
  - PARAESTHESIA [None]
  - PETECHIAE [None]
  - PHOTOPHOBIA [None]
  - PYREXIA [None]
  - SLEEP DISORDER [None]
  - SPEECH DISORDER [None]
  - TINNITUS [None]
  - VOMITING [None]
